FAERS Safety Report 10049060 (Version 1)
Quarter: 2014Q1

REPORT INFORMATION
  Report Type: Report from Study
  Country: TR (occurrence: TR)
  Receive Date: 20140331
  Receipt Date: 20140331
  Transmission Date: 20141002
  Serious: Yes (Hospitalization)
  Sender: FDA-Public Use
  Company Number: TR-US-EMD SERONO, INC.-7278557

PATIENT
  Sex: Female
  Weight: 61 kg

DRUGS (2)
  1. REBIF [Suspect]
     Indication: MULTIPLE SCLEROSIS
     Dates: end: 20140228
  2. TAMOL [Suspect]
     Indication: ANALGESIC THERAPY

REACTIONS (3)
  - Influenza [Unknown]
  - Dizziness [Unknown]
  - Balance disorder [Unknown]
